FAERS Safety Report 16611304 (Version 3)
Quarter: 2021Q1

REPORT INFORMATION
  Report Type: Spontaneous
  Country: US (occurrence: US)
  Receive Date: 20190722
  Receipt Date: 20210322
  Transmission Date: 20210419
  Serious: No
  Sender: FDA-Public Use
  Company Number: US-SA-2019SA197329

PATIENT
  Age: 50 Year
  Sex: Female
  Weight: 72 kg

DRUGS (27)
  1. FISH OIL [Concomitant]
     Active Substance: FISH OIL
  2. ZOLOFT [Concomitant]
     Active Substance: SERTRALINE HYDROCHLORIDE
  3. BUDESONIDE. [Concomitant]
     Active Substance: BUDESONIDE
  4. MAXEPA [Concomitant]
     Active Substance: DOCONEXENT\ICOSAPENT
  5. ADVAIR UNSPEC [Concomitant]
  6. VITAMIN C [Concomitant]
     Active Substance: ASCORBIC ACID
  7. ARMOUR THYROID [Concomitant]
     Active Substance: THYROID, PORCINE
  8. CALCIUM [Concomitant]
     Active Substance: CALCIUM
  9. CEFDINIR. [Concomitant]
     Active Substance: CEFDINIR
  10. NITROFURANTOIN. [Concomitant]
     Active Substance: NITROFURANTOIN
  11. DUPIXENT [Suspect]
     Active Substance: DUPILUMAB
     Indication: ASTHMA
     Dosage: 300 MG, QOW
     Route: 058
     Dates: start: 20190301
  12. GLUCOSAMINE SULFATE [Concomitant]
     Active Substance: GLUCOSAMINE SULFATE
  13. ESTROGEN/METHYLTES [Concomitant]
     Active Substance: ESTROGENS\METHYLTESTOSTERONE
  14. OMEPRAZOLE. [Concomitant]
     Active Substance: OMEPRAZOLE
  15. SERTRALINE [Concomitant]
     Active Substance: SERTRALINE HYDROCHLORIDE
  16. DICYCLOMINE [DICYCLOVERINE HYDROCHLORIDE] [Concomitant]
     Active Substance: DICYCLOMINE HYDROCHLORIDE
  17. ALBUTEROL [SALBUTAMOL] [Concomitant]
     Active Substance: ALBUTEROL
  18. BIOTIN [Concomitant]
     Active Substance: BIOTIN
  19. CALCIUM CARBONATE. [Concomitant]
     Active Substance: CALCIUM CARBONATE
  20. FLONASE ALLERGY RELIEF [Concomitant]
     Active Substance: FLUTICASONE PROPIONATE
  21. FLORASTOR [LACTOBACILLUS ACIDOPHILUS] [Concomitant]
  22. SYMBICORT [Concomitant]
     Active Substance: BUDESONIDE\FORMOTEROL FUMARATE DIHYDRATE
  23. MONTELUKAST SODIUM. [Concomitant]
     Active Substance: MONTELUKAST SODIUM
  24. ACETAMINOPHEN AND CODEINE [Concomitant]
     Active Substance: ACETAMINOPHEN\CODEINE PHOSPHATE
  25. UCERIS [Suspect]
     Active Substance: BUDESONIDE
  26. COVARYX [Concomitant]
     Active Substance: ESTROGENS, ESTERIFIED\METHYLTESTOSTERONE
  27. ALOSETRON [Concomitant]
     Active Substance: ALOSETRON

REACTIONS (6)
  - Asthma [Unknown]
  - Illness [Unknown]
  - Product use issue [Unknown]
  - Product dose omission issue [Unknown]
  - Pain [Unknown]
  - COVID-19 [Recovered/Resolved]

NARRATIVE: CASE EVENT DATE: 20200302
